FAERS Safety Report 9235817 (Version 1)
Quarter: 2013Q2

REPORT INFORMATION
  Report Type: Report from Study
  Country: CA (occurrence: CA)
  Receive Date: 20130417
  Receipt Date: 20130417
  Transmission Date: 20140414
  Serious: Yes (Death)
  Sender: FDA-Public Use
  Company Number: PHHY2013CA036955

PATIENT
  Sex: Female

DRUGS (3)
  1. ACLASTA [Suspect]
     Dosage: UNK
     Route: 042
     Dates: start: 20090714
  2. ACLASTA [Suspect]
     Dosage: UNK
     Route: 042
     Dates: start: 20100714
  3. ACLASTA [Suspect]
     Dosage: UNK
     Route: 042
     Dates: start: 20110721

REACTIONS (1)
  - Death [Fatal]
